FAERS Safety Report 14611025 (Version 1)
Quarter: 2018Q1

REPORT INFORMATION
  Report Type: Spontaneous
  Country: GB (occurrence: GB)
  Receive Date: 20180308
  Receipt Date: 20180308
  Transmission Date: 20180509
  Serious: Yes (Life-Threatening)
  Sender: FDA-Public Use
  Company Number: GB-SUN PHARMACEUTICAL INDUSTRIES LTD-2018R1-165067

PATIENT
  Age: 27 Year
  Sex: Male
  Weight: 92 kg

DRUGS (10)
  1. FUSIDIC ACID [Concomitant]
     Active Substance: FUSIDIC ACID
     Indication: CONJUNCTIVITIS
     Dosage: UNK
     Route: 047
     Dates: start: 20161125, end: 20161225
  2. BENZOYL PEROXIDE AND CLINDAMYCIN [Concomitant]
     Indication: ACNE
     Dosage: 5% AND 1% ()
     Route: 061
     Dates: start: 20161005, end: 20161107
  3. LYMECYCLINE [Concomitant]
     Active Substance: LYMECYCLINE
     Indication: ACNE
     Dosage: UNK
     Route: 048
     Dates: start: 20161105, end: 20161223
  4. IBUPROFEN. [Concomitant]
     Active Substance: IBUPROFEN
     Indication: NASOPHARYNGITIS
     Dosage: 1-2G ()
     Route: 048
     Dates: start: 20170110, end: 20170118
  5. COCODAMOL [Concomitant]
     Active Substance: ACETAMINOPHEN\CODEINE PHOSPHATE
     Indication: LIGAMENT SPRAIN
     Dosage: 30/500MG ()
     Route: 048
     Dates: start: 20161215, end: 20161229
  6. NAPROXEN. [Concomitant]
     Active Substance: NAPROXEN
     Indication: LIGAMENT SPRAIN
     Dosage: UNK
     Route: 048
     Dates: start: 20161215, end: 20161229
  7. PARACETAMOL [Concomitant]
     Active Substance: ACETAMINOPHEN
     Indication: NASOPHARYNGITIS
     Dosage: 1-2G ()
     Route: 065
     Dates: start: 20170110, end: 20170118
  8. ISOTRETINOIN. [Suspect]
     Active Substance: ISOTRETINOIN
     Indication: ACNE
     Dosage: UNK
     Route: 048
     Dates: start: 20170125, end: 20170531
  9. FLUCLOXACILLIN [Concomitant]
     Active Substance: FLUCLOXACILLIN
     Indication: WOUND INFECTION
     Dosage: UNK
     Route: 048
     Dates: start: 20161115, end: 20161122
  10. ZINERYT [Concomitant]
     Indication: ACNE
     Dosage: ()
     Route: 061
     Dates: start: 20161125, end: 20161225

REACTIONS (2)
  - Depressed mood [Recovered/Resolved]
  - Intentional overdose [Unknown]

NARRATIVE: CASE EVENT DATE: 20170101
